FAERS Safety Report 8791568 (Version 1)
Quarter: 2012Q4

REPORT INFORMATION
  Report Type: Spontaneous
  Country: JP (occurrence: None)
  Receive Date: 20120913
  Receipt Date: 20120913
  Transmission Date: 20130627
  Serious: Yes (Hospitalization, Other)
  Sender: FDA-Public Use
  Company Number: PRED20120053

PATIENT
  Age: 28 Year
  Sex: Female

DRUGS (5)
  1. PREDNISONE [Suspect]
     Indication: CHEMOTHERAPY
  2. CYCLOPHOSPHAMIDE [Suspect]
     Indication: CHEMOTHERAPY
  3. DAUNORUBICIN [Suspect]
     Indication: CHEMOTHERAPY
  4. VINCRISTINE [Suspect]
     Indication: CHEMOTHERAPY
     Dosage: MAX 2 MG)
  5. L-ASPARAGINASE [Suspect]
     Indication: CHEMOTHERAPY

REACTIONS (6)
  - Posterior reversible encephalopathy syndrome [None]
  - Ileus paralytic [None]
  - Coagulopathy [None]
  - Muscular weakness [None]
  - Hepatic enzyme increased [None]
  - Allogenic bone marrow transplantation therapy [None]
